FAERS Safety Report 7579096-4 (Version None)
Quarter: 2011Q2

REPORT INFORMATION
  Report Type: 
  Country: None (occurrence: None)
  Receive Date: 20110628
  Receipt Date: 20110623
  Transmission Date: 20111010
  Serious: Yes (Other)
  Sender: FDA-Public Use
  Company Number: US-PFIZER INC-2011088445

PATIENT
  Sex: Female
  Weight: 55.329 kg

DRUGS (7)
  1. NEURONTIN [Suspect]
     Dosage: UNK
  2. ZOLOFT [Suspect]
     Dosage: 25 MG, 1X/DAY
     Route: 048
     Dates: start: 20100101
  3. ZOLOFT [Suspect]
     Dosage: UNK
  4. NEURONTIN [Suspect]
     Dosage: UNK
     Route: 048
  5. ZOLOFT [Suspect]
     Indication: DEPRESSION
     Dosage: 50 MG, 1X/DAY
     Route: 048
     Dates: start: 20100101
  6. LEVOTHYROXINE SODIUM [Suspect]
     Indication: THYROID DISORDER
     Dosage: 25 I?G, UNK
  7. CLONAZEPAM [Concomitant]
     Dosage: UNK

REACTIONS (5)
  - CONTUSION [None]
  - HEADACHE [None]
  - NAUSEA [None]
  - MALAISE [None]
  - ABNORMAL CLOTTING FACTOR [None]
